FAERS Safety Report 10354401 (Version 1)
Quarter: 2014Q3

REPORT INFORMATION
  Report Type: Spontaneous
  Country: FR (occurrence: FR)
  Receive Date: 20140731
  Receipt Date: 20140731
  Transmission Date: 20150326
  Serious: Yes (Hospitalization)
  Sender: FDA-Public Use
  Company Number: FR-ASTRAZENECA-2014SE54340

PATIENT
  Age: 22004 Day
  Sex: Male
  Weight: 49 kg

DRUGS (5)
  1. CEFTRIAXONE. [Concomitant]
     Active Substance: CEFTRIAXONE
     Route: 040
  2. INEXIUM [Suspect]
     Active Substance: ESOMEPRAZOLE
     Route: 048
     Dates: start: 20140707, end: 20140707
  3. ZOVIRAX [Concomitant]
     Active Substance: ACYCLOVIR
     Route: 042
     Dates: start: 20140707, end: 20140708
  4. AMOXICILLINE PANPHARMA (NON-AZ DRUG) [Suspect]
     Active Substance: AMOXICILLIN
     Route: 041
     Dates: start: 20140710, end: 20140710
  5. AMOXICILLINE PANPHARMA (NON-AZ DRUG) [Suspect]
     Active Substance: AMOXICILLIN
     Route: 041
     Dates: start: 20140708, end: 20140709

REACTIONS (2)
  - Renal failure [Recovering/Resolving]
  - Haematuria [Recovered/Resolved]

NARRATIVE: CASE EVENT DATE: 20140710
